FAERS Safety Report 10904495 (Version 3)
Quarter: 2016Q4

REPORT INFORMATION
  Report Type: Spontaneous
  Country: US (occurrence: US)
  Receive Date: 20150311
  Receipt Date: 20161031
  Transmission Date: 20170206
  Serious: Yes (Hospitalization, Other)
  Sender: FDA-Public Use
  Company Number: US-ELI_LILLY_AND_COMPANY-US201502009436

PATIENT
  Age: 58 Year
  Sex: Male
  Weight: 95.24 kg

DRUGS (3)
  1. AXIRON [Suspect]
     Active Substance: TESTOSTERONE
     Indication: BLOOD TESTOSTERONE DECREASED
     Dosage: UNK, UNKNOWN
     Route: 061
     Dates: start: 201112, end: 201203
  2. LOSARTAN. [Concomitant]
     Active Substance: LOSARTAN
     Indication: BLOOD PRESSURE MEASUREMENT
     Dosage: UNK, UNKNOWN
     Route: 065
     Dates: start: 2012
  3. ROSUVASTATINA CALCICA [Concomitant]
     Indication: BLOOD CHOLESTEROL
     Dosage: UNK, UNKNOWN
     Route: 048
     Dates: start: 2012

REACTIONS (4)
  - Dyslipidaemia [Not Recovered/Not Resolved]
  - Atrial fibrillation [Not Recovered/Not Resolved]
  - Coronary artery disease [Not Recovered/Not Resolved]
  - Myocardial infarction [Not Recovered/Not Resolved]

NARRATIVE: CASE EVENT DATE: 20120303
